FAERS Safety Report 17110960 (Version 4)
Quarter: 2019Q4

REPORT INFORMATION
  Report Type: Spontaneous
  Country: US (occurrence: US)
  Receive Date: 20191204
  Receipt Date: 20191224
  Transmission Date: 20200122
  Serious: Yes (Other)
  Sender: FDA-Public Use
  Company Number: US-PFIZER INC-2019522232

PATIENT
  Age: 56 Year
  Sex: Male
  Weight: 108.84 kg

DRUGS (12)
  1. MAGNESIUM [Concomitant]
     Active Substance: MAGNESIUM
     Dosage: UNK
  2. B COMPLEX [VITAMIN B COMPLEX] [Concomitant]
     Dosage: UNK
     Dates: start: 2000
  3. SELENIUM [Concomitant]
     Active Substance: SELENIUM
     Dosage: UNK
     Dates: start: 2019
  4. VITA D [COLECALCIFEROL] [Concomitant]
     Dosage: UNK
  5. VITAMIN A [RETINOL ACETATE] [Concomitant]
     Dosage: UNK
     Dates: start: 2018
  6. FOLIC ACID. [Concomitant]
     Active Substance: FOLIC ACID
     Dosage: UNK
     Dates: start: 2000
  7. DILANTIN [Suspect]
     Active Substance: PHENYTOIN
     Indication: STURGE-WEBER SYNDROME
     Dosage: 300 MG, DAILY(BREAKFAST)
     Dates: start: 1981
  8. VITAMIN E [Concomitant]
     Active Substance: .ALPHA.-TOCOPHEROL
     Dosage: UNK
     Dates: start: 2019
  9. CALCIUM [Interacting]
     Active Substance: CALCIUM
     Indication: BONE DISORDER
     Dosage: UNK, 1X/DAY (AT NIGHT)
     Dates: start: 1981
  10. FISH OIL [Concomitant]
     Active Substance: FISH OIL
     Dosage: UNK
     Dates: start: 2019
  11. VITAMIN C [Concomitant]
     Active Substance: ASCORBIC ACID
     Dosage: UNK
     Dates: start: 2017
  12. ZINC. [Concomitant]
     Active Substance: ZINC
     Dosage: UNK

REACTIONS (4)
  - Seizure [Unknown]
  - Off label use [Unknown]
  - Product use in unapproved indication [Unknown]
  - Inhibitory drug interaction [Recovered/Resolved]
